FAERS Safety Report 11413184 (Version 1)
Quarter: 2015Q3

REPORT INFORMATION
  Report Type: Spontaneous
  Country: US (occurrence: US)
  Receive Date: 20150821
  Receipt Date: 20150821
  Transmission Date: 20151125
  Serious: No
  Sender: FDA-Public Use
  Company Number: US-ELI_LILLY_AND_COMPANY-US201208008762

PATIENT
  Sex: Female

DRUGS (6)
  1. HUMULIN R [Suspect]
     Active Substance: INSULIN HUMAN
     Dosage: 0.27 ML, OTHER
     Dates: start: 20120825
  2. HUMULIN R [Suspect]
     Active Substance: INSULIN HUMAN
     Indication: DIABETES MELLITUS
     Dosage: 0.25 ML, EACH MORNING
     Dates: start: 20120825
  3. HUMULIN R [Suspect]
     Active Substance: INSULIN HUMAN
     Dosage: 0.26 ML, EACH EVENING
  4. LEVEMIR [Concomitant]
     Active Substance: INSULIN DETEMIR
  5. GLUCOPHAGE [Concomitant]
     Active Substance: METFORMIN HYDROCHLORIDE
     Dosage: 1000 MG, QD
  6. NOVOLOG [Concomitant]
     Active Substance: INSULIN ASPART

REACTIONS (3)
  - Vomiting [Unknown]
  - Dyskinesia [Unknown]
  - Nervousness [Unknown]

NARRATIVE: CASE EVENT DATE: 20120825
